FAERS Safety Report 5339489-2 (Version None)
Quarter: 2007Q2

REPORT INFORMATION
  Report Type: 
  Country: None (occurrence: None)
  Receive Date: 20070525
  Receipt Date: 20070511
  Transmission Date: 20071010
  Serious: Yes (Hospitalization, Other)
  Sender: FDA-Public Use
  Company Number: 156381USA

PATIENT
  Age: 7 Month
  Sex: Female

DRUGS (1)
  1. RANITIDINE HCL [Suspect]
     Indication: GASTROOESOPHAGEAL REFLUX DISEASE
     Dosage: 75 MG (37.5 MG, 2 IN 1 D) ORAL
     Route: 048
     Dates: start: 20070401, end: 20070506

REACTIONS (3)
  - CONVULSION [None]
  - FONTANELLE BULGING [None]
  - OVERDOSE [None]
